FAERS Safety Report 7455189-7 (Version None)
Quarter: 2011Q2

REPORT INFORMATION
  Report Type: 
  Country: None (occurrence: None)
  Receive Date: 20110503
  Receipt Date: 20110420
  Transmission Date: 20111010
  Serious: Yes (Other)
  Sender: FDA-Public Use
  Company Number: PHHY2011DE33638

PATIENT
  Sex: Female

DRUGS (4)
  1. JANUMET [Concomitant]
     Dosage: UNK
     Route: 048
  2. PLAVIX [Concomitant]
     Dosage: UNK
     Route: 048
  3. RASILEZ [Suspect]
     Dosage: 300 MG, UNK
     Dates: start: 20110301
  4. SORTIS [Concomitant]
     Dosage: UNK
     Route: 048

REACTIONS (3)
  - RETINAL TEAR [None]
  - VITREOUS FLOATERS [None]
  - VITREOUS DETACHMENT [None]
